FAERS Safety Report 6174096-3 (Version None)
Quarter: 2009Q2

REPORT INFORMATION
  Report Type: 
  Country: None (occurrence: None)
  Receive Date: 20090430
  Receipt Date: 20090421
  Transmission Date: 20091009
  Serious: No
  Sender: FDA-Public Use
  Company Number: PHEH2009US02881

PATIENT
  Age: 78 Year
  Sex: Female

DRUGS (11)
  1. STARLIX [Suspect]
     Dosage: 60 MG, QD
  2. STARLIX [Suspect]
     Dosage: UNK, PRN
  3. LIPITOR [Concomitant]
     Indication: HYPERCHOLESTEROLAEMIA
     Dosage: 20 MG, QD
     Dates: start: 20060101
  4. LEVOTHYROXINE SODIUM [Concomitant]
     Indication: HYPOTHYROIDISM
     Dosage: 0.88 MG, QD
     Dates: start: 19940101
  5. TIAZAC [Concomitant]
     Indication: HYPERTENSION
     Dosage: 240 MG, QD
     Dates: start: 20010101
  6. VALIUM [Concomitant]
     Indication: STRESS
     Dosage: 5 MG, PRN
     Dates: start: 19940101
  7. LANOXIN [Concomitant]
     Indication: HEART RATE IRREGULAR
     Dosage: 0.25 MG, QD
     Dates: start: 19910101
  8. BONIVA [Concomitant]
     Indication: OSTEOPOROSIS
     Dosage: 150 MG, QMO
     Dates: start: 20050101
  9. ENALAPRIL [Concomitant]
     Indication: HYPERTENSION
     Dosage: 20 MG, QD
     Dates: start: 20010101
  10. ALPHAGAN [Concomitant]
     Indication: GLAUCOMA
     Dosage: 1 G/L, BID
     Dates: start: 20020101
  11. TIMOPTIC [Concomitant]
     Indication: GLAUCOMA
     Dosage: 1 G/L, BID
     Dates: start: 20010101

REACTIONS (1)
  - EYE HAEMORRHAGE [None]
